FAERS Safety Report 9174971 (Version 3)
Quarter: 2013Q2

REPORT INFORMATION
  Report Type: Report from Study
  Country: AU (occurrence: AU)
  Receive Date: 20130320
  Receipt Date: 20130520
  Transmission Date: 20140414
  Serious: Yes (Hospitalization)
  Sender: FDA-Public Use
  Company Number: PHHY2013AU027015

PATIENT
  Sex: Female
  Weight: 46 kg

DRUGS (14)
  1. ACLASTA [Suspect]
     Indication: OSTEOPOROSIS
     Dosage: 5 MG, PER 100 ML
     Route: 042
     Dates: start: 20110428
  2. ACLASTA [Suspect]
     Dosage: 5 MG, UNK
     Route: 042
     Dates: start: 20120402
  3. VIT D [Concomitant]
     Dosage: 2 DF, QD
  4. NEXIUM 1-2-3 [Concomitant]
     Dosage: 1 DF, QD
  5. OROXINE [Concomitant]
     Dosage: 1 DF, QD
  6. ZANIDIP [Concomitant]
     Dosage: 1 DF, QD
  7. SPIRIVA [Concomitant]
     Dosage: 1 DF, QD
  8. SERETIDE MDI [Concomitant]
     Dosage: 2 DF, BD, 250/25
  9. ASTRIX [Concomitant]
     Dosage: 1 DF, QD, AFTER MEALS
  10. PANADOL OSTEO [Concomitant]
     Dosage: 2 TDS, 665 MG X 2
  11. LIPITOR [Concomitant]
     Dosage: 1 DF, QD
  12. MEGAFOL [Concomitant]
     Dosage: 1 DF, QD, 5MG X 2
  13. ASMOL [Concomitant]
     Dosage: 100 MCG/DOSE, 200 DOSESX2, 2 PUFF 4 HRLY
  14. MICARDIS [Concomitant]
     Dosage: 1 DF, QD

REACTIONS (2)
  - Thyroid disorder [Unknown]
  - Weight decreased [Recovered/Resolved]
